FAERS Safety Report 8407286-7 (Version None)
Quarter: 2012Q2

REPORT INFORMATION
  Report Type: 
  Country: None (occurrence: None)
  Receive Date: 20120604
  Receipt Date: 20120521
  Transmission Date: 20120825
  Serious: Yes (Death, Hospitalization)
  Sender: FDA-Public Use
  Company Number: US-ROCHE-1044661

PATIENT
  Sex: Male

DRUGS (8)
  1. ALTEPLASE [Suspect]
     Indication: PRODUCT USED FOR UNKNOWN INDICATION
     Route: 042
  2. INSULIN [Concomitant]
  3. LISINOPRIL [Concomitant]
  4. HEPARIN [Suspect]
     Indication: ISCHAEMIC STROKE
     Route: 042
  5. GEMFIBROZIL [Concomitant]
  6. TIROFIBAN [Suspect]
     Indication: ISCHAEMIC STROKE
  7. CLOPIDOGREL [Suspect]
     Indication: ISCHAEMIC STROKE
  8. ASPIRIN [Suspect]
     Indication: ISCHAEMIC STROKE

REACTIONS (6)
  - APHASIA [None]
  - CEREBRAL HAEMORRHAGE [None]
  - HAEMORRHAGIC TRANSFORMATION STROKE [None]
  - INTRAVENTRICULAR HAEMORRHAGE [None]
  - UNRESPONSIVE TO STIMULI [None]
  - HEMIPARESIS [None]
